FAERS Safety Report 10058232 (Version 3)
Quarter: 2014Q2

REPORT INFORMATION
  Report Type: Spontaneous
  Country: DE (occurrence: DE)
  Receive Date: 20140404
  Receipt Date: 20140520
  Transmission Date: 20141212
  Serious: Yes (Hospitalization)
  Sender: FDA-Public Use
  Company Number: DE-JNJFOC-20140319029

PATIENT
  Age: 30 Year
  Sex: Female

DRUGS (4)
  1. REMICADE [Suspect]
     Indication: CROHN^S DISEASE
     Route: 042
  2. REMICADE [Suspect]
     Indication: CROHN^S DISEASE
     Route: 042
     Dates: start: 201012, end: 201403
  3. PREDNISOLONE [Concomitant]
     Route: 065
  4. TAVEGIL [Concomitant]
     Route: 065

REACTIONS (2)
  - Optic neuritis [Recovering/Resolving]
  - Blindness transient [Recovering/Resolving]
